FAERS Safety Report 5698939-2 (Version None)
Quarter: 2008Q2

REPORT INFORMATION
  Report Type: 
  Country: None (occurrence: None)
  Receive Date: 20080408
  Receipt Date: 20060818
  Transmission Date: 20081010
  Serious: No
  Sender: FDA-Public Use
  Company Number: US-BAYER-US-2006-023959

PATIENT
  Age: 42 Year
  Sex: Female
  Weight: 100 kg

DRUGS (1)
  1. ULTRAVIST 300 [Suspect]
     Indication: COMPUTERISED TOMOGRAM ABDOMEN
     Dosage: UNIT DOSE: 135 ML
     Route: 042
     Dates: start: 20060817, end: 20060817

REACTIONS (1)
  - URTICARIA [None]
